FAERS Safety Report 20838916 (Version 2)
Quarter: 2022Q2

REPORT INFORMATION
  Report Type: Spontaneous
  Country: US (occurrence: US)
  Receive Date: 20220517
  Receipt Date: 20220629
  Transmission Date: 20220721
  Serious: No
  Sender: FDA-Public Use
  Company Number: US-PFIZER INC-202200680585

PATIENT
  Age: 13 Year
  Sex: Male
  Weight: 49.9 kg

DRUGS (1)
  1. GENOTROPIN [Suspect]
     Active Substance: SOMATROPIN
     Indication: Growth hormone deficiency
     Dosage: UNK, 1X/DAY (2.0 INJECTED ONCE A DAY)
     Dates: start: 202201

REACTIONS (4)
  - Overweight [Unknown]
  - Product dose omission issue [Unknown]
  - Poor quality device used [Unknown]
  - Device issue [Unknown]
